FAERS Safety Report 9636615 (Version 1)
Quarter: 2013Q4

REPORT INFORMATION
  Report Type: Spontaneous
  Country: US (occurrence: US)
  Receive Date: 20131021
  Receipt Date: 20131021
  Transmission Date: 20140711
  Serious: No
  Sender: FDA-Public Use
  Company Number: US-009507513-1310USA006503

PATIENT
  Sex: Male

DRUGS (6)
  1. VICTRELIS [Suspect]
     Indication: HEPATITIS C
     Dosage: 800 MG, EVERY EIGHT HOURS
     Route: 048
     Dates: start: 201307
  2. RIBAPAK [Suspect]
     Dosage: 600 MG, TWICE PER DAY
     Route: 048
     Dates: start: 20130623, end: 2013
  3. RIBAPAK [Suspect]
     Dosage: 600 MG, ONCE A DAY
     Route: 048
     Dates: start: 201310
  4. PEGASYS [Suspect]
     Dosage: 180 MICROGRAM, PER WEEK
     Route: 058
     Dates: start: 20130623, end: 2013
  5. PEGASYS [Suspect]
     Dosage: 135 MICROGRAM, PER WEEK
     Route: 058
     Dates: start: 201310
  6. COREG [Concomitant]

REACTIONS (4)
  - Fatigue [Unknown]
  - Pyrexia [Unknown]
  - Rash pruritic [Unknown]
  - Rash macular [Unknown]
